FAERS Safety Report 11704867 (Version 1)
Quarter: 2015Q4

REPORT INFORMATION
  Report Type: Spontaneous
  Country: IL (occurrence: IL)
  Receive Date: 20151106
  Receipt Date: 20151106
  Transmission Date: 20160304
  Serious: Yes (Other)
  Sender: FDA-Public Use
  Company Number: IL-PFIZER INC-2015352811

PATIENT
  Age: 81 Year
  Sex: Male

DRUGS (2)
  1. SIMVASTATIN. [Concomitant]
     Active Substance: SIMVASTATIN
     Dosage: 20 MG, DAILY
     Route: 048
     Dates: start: 2005, end: 201308
  2. TORISEL [Suspect]
     Active Substance: TEMSIROLIMUS
     Indication: METASTATIC RENAL CELL CARCINOMA
     Dosage: 25 MG, WEEKLY
     Route: 042
     Dates: start: 20120830, end: 20130807

REACTIONS (6)
  - Dysgeusia [Recovered/Resolved]
  - Angle closure glaucoma [Unknown]
  - Epistaxis [Unknown]
  - Mucosal inflammation [Recovered/Resolved]
  - Disease progression [Unknown]
  - Metastatic renal cell carcinoma [Unknown]

NARRATIVE: CASE EVENT DATE: 20120912
